FAERS Safety Report 20644905 (Version 7)
Quarter: 2022Q3

REPORT INFORMATION
  Report Type: Spontaneous
  Country: CA (occurrence: CA)
  Receive Date: 20220328
  Receipt Date: 20220801
  Transmission Date: 20221027
  Serious: Yes (Life-Threatening, Hospitalization, Other)
  Sender: FDA-Public Use
  Company Number: CA-PFIZER INC-202200455655

PATIENT
  Age: 71 Year
  Sex: Female

DRUGS (1)
  1. INLYTA [Suspect]
     Active Substance: AXITINIB
     Indication: Metastatic renal cell carcinoma
     Dosage: 5 MG
     Dates: start: 20211202

REACTIONS (5)
  - COVID-19 [Not Recovered/Not Resolved]
  - COVID-19 pneumonia [Recovering/Resolving]
  - Stomatitis [Unknown]
  - Movement disorder [Unknown]
  - Asthenia [Not Recovered/Not Resolved]
